FAERS Safety Report 11618976 (Version 2)
Quarter: 2015Q4

REPORT INFORMATION
  Report Type: Spontaneous
  Country: US (occurrence: US)
  Receive Date: 20151012
  Receipt Date: 20151019
  Transmission Date: 20160304
  Serious: Yes (Hospitalization, Other)
  Sender: FDA-Public Use
  Company Number: US-ASTRAZENECA-2015SE98131

PATIENT
  Age: 8 Month
  Sex: Male
  Weight: 9.3 kg

DRUGS (1)
  1. SEROQUEL XR [Suspect]
     Active Substance: QUETIAPINE FUMARATE
     Route: 048
     Dates: start: 20150909

REACTIONS (9)
  - Accidental exposure to product by child [Unknown]
  - Irritability [Unknown]
  - Incoherent [Unknown]
  - Somnolence [Unknown]
  - Muscle disorder [Unknown]
  - Staring [Unknown]
  - Fatigue [Unknown]
  - Drug screen positive [Unknown]
  - Drug screen false positive [Unknown]

NARRATIVE: CASE EVENT DATE: 20150909
